FAERS Safety Report 7009542-6 (Version None)
Quarter: 2010Q3

REPORT INFORMATION
  Report Type: 
  Country: None (occurrence: None)
  Receive Date: 20100923
  Receipt Date: 20100920
  Transmission Date: 20110219
  Serious: Yes (Death, Hospitalization, Other)
  Sender: FDA-Public Use
  Company Number: PHHY2010CH61825

PATIENT
  Age: 49 Year
  Sex: Female

DRUGS (6)
  1. CYCLOSPORINE [Suspect]
     Indication: ACUTE GRAFT VERSUS HOST DISEASE IN INTESTINE
     Dosage: UNK
  2. IFOSFAMIDE [Concomitant]
     Dosage: UNK
  3. CARBOPLATIN [Concomitant]
     Dosage: UNK
  4. ETOPOSIDE [Concomitant]
     Dosage: UNK
  5. FLUDARABINE [Concomitant]
     Dosage: UNK
  6. MELPHALAN HYDROCHLORIDE [Concomitant]
     Dosage: UNK

REACTIONS (11)
  - BRONCHOALVEOLAR LAVAGE ABNORMAL [None]
  - CONFUSIONAL STATE [None]
  - DEVICE RELATED INFECTION [None]
  - DIARRHOEA [None]
  - DYSPNOEA [None]
  - FUNGAL INFECTION [None]
  - GRAFT VERSUS HOST DISEASE [None]
  - IMMUNOSUPPRESSION [None]
  - MENINGEAL DISORDER [None]
  - MICROSPORIDIA INFECTION [None]
  - PYREXIA [None]
